FAERS Safety Report 11184442 (Version 2)
Quarter: 2015Q3

REPORT INFORMATION
  Report Type: Spontaneous
  Country: IT (occurrence: IT)
  Receive Date: 20150612
  Receipt Date: 20150702
  Transmission Date: 20151125
  Serious: Yes (Hospitalization)
  Sender: FDA-Public Use
  Company Number: IT-TEVA-568530ACC

PATIENT
  Age: 73 Year
  Sex: Male

DRUGS (2)
  1. TACHIDOL - 500 MG/30 MG GRANULATO EFFERVESCENTE- AZIENDE CHIMICHE RIUN [Suspect]
     Active Substance: ACETAMINOPHEN\CODEINE PHOSPHATE
     Indication: INTENTIONAL SELF-INJURY
     Dosage: 9 DF TOTAL, EFFERVESCENT GRANULES
     Route: 048
     Dates: start: 20150316, end: 20150316
  2. ALPRAZOLAM. [Suspect]
     Active Substance: ALPRAZOLAM
     Indication: INTENTIONAL SELF-INJURY
     Dosage: 24 DF TOTAL
     Route: 048
     Dates: start: 20150316, end: 20150316

REACTIONS (2)
  - Intentional self-injury [Unknown]
  - Toxicity to various agents [Unknown]

NARRATIVE: CASE EVENT DATE: 20150316
